FAERS Safety Report 6274608-5 (Version None)
Quarter: 2009Q3

REPORT INFORMATION
  Report Type: 
  Country: None (occurrence: None)
  Receive Date: 20090717
  Receipt Date: 20090702
  Transmission Date: 20100115
  Serious: Yes (Death)
  Sender: FDA-Public Use
  Company Number: 2009AL001185

PATIENT
  Age: 69 Year
  Sex: Female

DRUGS (15)
  1. DIGOXIN [Suspect]
     Dosage: 0.125MG, DAILY, PO
     Route: 048
  2. AMIODARONE [Concomitant]
  3. MULTI-VITAMIN [Concomitant]
  4. OS-CAL [Concomitant]
  5. EFFEXOR [Concomitant]
  6. REMERON [Concomitant]
  7. LESCOL [Concomitant]
  8. ACCUPRIL [Concomitant]
  9. ADVAIR HFA [Concomitant]
  10. COUMADIN [Concomitant]
  11. HYOSCYAMINE [Concomitant]
  12. MIRTAZAPINE [Concomitant]
  13. PACERONE [Concomitant]
  14. QUINAPRIL [Concomitant]
  15. TEMAZEPAM [Concomitant]

REACTIONS (13)
  - ANHEDONIA [None]
  - ATRIAL FLUTTER [None]
  - CHRONIC OBSTRUCTIVE PULMONARY DISEASE [None]
  - DEHYDRATION [None]
  - ECONOMIC PROBLEM [None]
  - EMOTIONAL DISORDER [None]
  - INJURY [None]
  - MENTAL DISORDER [None]
  - PAIN [None]
  - RENAL FAILURE [None]
  - SOCIAL AVOIDANT BEHAVIOUR [None]
  - THERAPEUTIC AGENT TOXICITY [None]
  - UNEVALUABLE EVENT [None]
